FAERS Safety Report 12137710 (Version 1)
Quarter: 2016Q1

REPORT INFORMATION
  Report Type: Spontaneous
  Country: DE (occurrence: DE)
  Receive Date: 20160302
  Receipt Date: 20160302
  Transmission Date: 20160526
  Serious: Yes (Other)
  Sender: FDA-Public Use
  Company Number: DE-ASTRAZENECA-2016SE19959

PATIENT
  Age: 60 Year
  Sex: Male
  Weight: 100 kg

DRUGS (8)
  1. ASPIRIN. [Concomitant]
     Active Substance: ASPIRIN
     Dates: start: 201507
  2. XIGDUO XR [Suspect]
     Active Substance: DAPAGLIFLOZIN PROPANEDIOL\METFORMIN HYDROCHLORIDE
     Indication: TYPE 2 DIABETES MELLITUS
     Dosage: 5 MG/1000 MG DAILY DOSE: 2 DF DOSAGE FORM EVERY DAYS
     Route: 048
     Dates: start: 201511, end: 20160108
  3. HUMALOG [Concomitant]
     Active Substance: INSULIN LISPRO
  4. CLOPIDOGREL [Concomitant]
     Active Substance: CLOPIDOGREL BISULFATE
     Indication: CORONARY ARTERY DISEASE
     Dosage: DAILY DOSE: 75 MG MILLGRAM(S) EVERY DAYS
     Dates: start: 201507
  5. SIMVASTATIN. [Concomitant]
     Active Substance: SIMVASTATIN
     Indication: DYSLIPIDAEMIA
     Dosage: DAILY DOSE: 20 MG MILLGRAM(S) EVERY DAYS
     Dates: start: 2006
  6. LEVEMIR [Concomitant]
     Active Substance: INSULIN DETEMIR
  7. BISO LICH [Concomitant]
     Active Substance: BISOPROLOL
     Indication: HYPERTENSION
     Dosage: DAILY DOSE: 2.5 MG MILLGRAM(S) EVERY DAYS
     Dates: start: 201507
  8. MICARDISPLUS [Concomitant]
     Active Substance: HYDROCHLOROTHIAZIDE\TELMISARTAN
     Indication: HYPERTENSION
     Dosage: 80/12,5 MG DAILY DOSE: 1 DF DOSAGE FORM EVERY DAYS
     Dates: start: 2006

REACTIONS (3)
  - Alanine aminotransferase increased [Recovered/Resolved]
  - Aspartate aminotransferase increased [Recovered/Resolved]
  - Gamma-glutamyltransferase increased [Recovered/Resolved]

NARRATIVE: CASE EVENT DATE: 20160104
